FAERS Safety Report 4643199-4 (Version None)
Quarter: 2005Q2

REPORT INFORMATION
  Report Type: 
  Country: None (occurrence: None)
  Receive Date: 20050421
  Receipt Date: 20050405
  Transmission Date: 20051028
  Serious: Yes (Life-Threatening, Hospitalization)
  Sender: FDA-Public Use
  Company Number: 10834

PATIENT
  Age: 63 Year
  Sex: Male

DRUGS (12)
  1. METHOTREXATE [Suspect]
     Indication: PYODERMA GANGRENOSUM
     Dosage: 7.5 MG WEEKLY PO
     Route: 048
  2. METHYLPREDNISOLONE [Suspect]
     Indication: PYODERMA GANGRENOSUM
     Dosage: 1 G IV
     Route: 042
  3. PREDNISOLONE [Suspect]
     Indication: PYODERMA GANGRENOSUM
     Dosage: 80 MG PO
     Route: 048
  4. CLOBETASOL [Suspect]
     Indication: PYODERMA GANGRENOSUM
     Dosage: TP
     Route: 064
  5. CYCLOSPORINE [Suspect]
     Indication: PYODERMA GANGRENOSUM
     Dosage: 5 MG/KG
  6. THALIDOMIDE [Suspect]
     Dosage: 150 MG
  7. TRIAMCINOLONE [Suspect]
     Indication: PYODERMA GANGRENOSUM
     Dosage: I240 MG TOTAL
     Route: 027
  8. MYCOPHENOLATE MOFETIL [Suspect]
     Indication: PYODERMA GANGRENOSUM
     Dosage: 500 MG BID
  9. IMMUNOGLOBULIN [Suspect]
     Indication: PYODERMA GANGRENOSUM
     Dosage: 2000 MG/KG
     Route: 042
  10. LEUKINE [Suspect]
     Indication: PYODERMA GANGRENOSUM
     Dosage: 400 MG
     Route: 058
  11. CLOFAZAMINE [Suspect]
     Indication: PYODERMA GANGRENOSUM
     Dosage: 200 MG
  12. ANTIBIOTICS [Suspect]
     Indication: PYODERMA GANGRENOSUM

REACTIONS (8)
  - CUSHINGOID [None]
  - DIABETES MELLITUS [None]
  - DRUG INEFFECTIVE [None]
  - HAEMOGLOBIN DECREASED [None]
  - IATROGENIC INJURY [None]
  - PEPTIC ULCER PERFORATION [None]
  - PERITONITIS [None]
  - WOUND DEHISCENCE [None]
